FAERS Safety Report 8434938-5 (Version None)
Quarter: 2012Q2

REPORT INFORMATION
  Report Type: 
  Country: None (occurrence: None)
  Receive Date: 20120608
  Receipt Date: 20120608
  Transmission Date: 20120825
  Serious: Yes (Other)
  Sender: FDA-Public Use
  Company Number: None

PATIENT
  Sex: Female

DRUGS (1)
  1. LEVAQUIN [Suspect]
     Indication: PNEUMONIA
     Dosage: 750MG 1 PER DAY PO
     Route: 048
     Dates: start: 20120524, end: 20120526

REACTIONS (14)
  - ANXIETY [None]
  - SWELLING [None]
  - PRURITUS [None]
  - CONFUSIONAL STATE [None]
  - TENDON DISORDER [None]
  - HYPERHIDROSIS [None]
  - VISUAL IMPAIRMENT [None]
  - URTICARIA [None]
  - VAGINAL HAEMORRHAGE [None]
  - INSOMNIA [None]
  - PAIN [None]
  - FEELINGS OF WORTHLESSNESS [None]
  - MUSCULAR WEAKNESS [None]
  - JOINT SWELLING [None]
